FAERS Safety Report 10669785 (Version 1)
Quarter: 2014Q4

REPORT INFORMATION
  Report Type: Spontaneous
  Country: US (occurrence: US)
  Receive Date: 20141222
  Receipt Date: 20141222
  Transmission Date: 20150529
  Serious: No
  Sender: FDA-Public Use
  Company Number: US-GLAXOSMITHKLINE-A1075501A

PATIENT

DRUGS (3)
  1. AVODART [Suspect]
     Active Substance: DUTASTERIDE
     Indication: NOCTURIA
     Route: 048
     Dates: start: 20140414, end: 20140417
  2. TAMSULOSIN CAPSULES [Suspect]
     Active Substance: TAMSULOSIN
     Indication: NOCTURIA
     Route: 048
     Dates: start: 2013, end: 20140417
  3. AMLODIPINE [Concomitant]
     Active Substance: AMLODIPINE BESYLATE

REACTIONS (5)
  - Insomnia [Unknown]
  - Drug ineffective [Recovered/Resolved]
  - Nausea [Unknown]
  - Pollakiuria [Unknown]
  - Poor quality sleep [Unknown]

NARRATIVE: CASE EVENT DATE: 20140414
